FAERS Safety Report 5432209-2 (Version None)
Quarter: 2007Q3

REPORT INFORMATION
  Report Type: 
  Country: None (occurrence: None)
  Receive Date: 20070830
  Receipt Date: 20070822
  Transmission Date: 20080115
  Serious: Yes (Life-Threatening, Hospitalization, Other)
  Sender: FDA-Public Use
  Company Number: JP-PFIZER INC-2007061911

PATIENT
  Sex: Male
  Weight: 65 kg

DRUGS (3)
  1. ZITHROMAC [Suspect]
     Indication: INFECTION
     Route: 048
     Dates: start: 20060701, end: 20060703
  2. IBUPROFEN [Suspect]
     Indication: PYREXIA
     Dosage: DAILY DOSE:200MG
     Route: 048
     Dates: start: 20060701, end: 20060705
  3. CALONAL [Concomitant]
     Route: 048
     Dates: start: 20060601, end: 20060705

REACTIONS (2)
  - ERYTHEMA [None]
  - HISTIOCYTOSIS HAEMATOPHAGIC [None]
